FAERS Safety Report 6221977-8 (Version None)
Quarter: 2009Q2

REPORT INFORMATION
  Report Type: 
  Country: None (occurrence: None)
  Receive Date: 20090608
  Receipt Date: 20090608
  Transmission Date: 20091009
  Serious: Yes (Life-Threatening)
  Sender: FDA-Public Use
  Company Number: None

PATIENT
  Age: 69 Year
  Sex: Female
  Weight: 70 kg

DRUGS (10)
  1. HEPARIN [Suspect]
     Indication: MYOCARDIAL INFARCTION
     Dosage: 25000 UNITS 8 ML/HOUR IV
     Route: 042
  2. COUMADIN [Concomitant]
  3. COREG [Concomitant]
  4. LYRICA [Concomitant]
  5. IMDUR [Concomitant]
  6. ZOCOR [Concomitant]
  7. MICRONASE [Concomitant]
  8. CYMBALTA [Concomitant]
  9. ASPIRIN [Concomitant]
  10. FESOL [Concomitant]

REACTIONS (2)
  - ACTIVATED PARTIAL THROMBOPLASTIN TIME PROLONGED [None]
  - GASTROINTESTINAL HAEMORRHAGE [None]
